FAERS Safety Report 9887208 (Version 1)
Quarter: 2014Q1

REPORT INFORMATION
  Report Type: Spontaneous
  Country: US (occurrence: US)
  Receive Date: 20140211
  Receipt Date: 20140211
  Transmission Date: 20141002
  Serious: No
  Sender: FDA-Public Use
  Company Number: US-BIOGENIDEC-2014BI009948

PATIENT
  Age: 45 Year
  Sex: Male

DRUGS (12)
  1. TECFIDERA [Suspect]
     Indication: RELAPSING-REMITTING MULTIPLE SCLEROSIS
     Route: 048
     Dates: start: 20130708, end: 201401
  2. CARISOPRODOL (SOMA) [Concomitant]
     Route: 048
     Dates: start: 20130515
  3. LUXIQ [Concomitant]
     Dates: start: 20100503
  4. VERAPAMIL HCL ER [Concomitant]
     Route: 048
     Dates: start: 20131127
  5. HYDROCODONE ACETAMINOPHEN [Concomitant]
     Indication: PAIN
     Route: 048
     Dates: start: 20130530
  6. PRILOSEC CPDR [Concomitant]
  7. RELPAX [Concomitant]
     Indication: MIGRAINE
     Route: 048
     Dates: start: 20121130
  8. GABAPENTIN [Concomitant]
     Route: 048
     Dates: start: 20121130
  9. ZOLPIDEM TARTRATE [Concomitant]
     Indication: SLEEP DISORDER
     Route: 048
     Dates: start: 20120830
  10. BUPROPION HCL ER [Concomitant]
     Route: 048
     Dates: start: 20111130
  11. KEPPRA [Concomitant]
     Route: 048
     Dates: start: 20121130
  12. IMITREX [Concomitant]
     Indication: HEADACHE
     Route: 048
     Dates: start: 20130703

REACTIONS (2)
  - Headache [Unknown]
  - Malaise [Unknown]
